FAERS Safety Report 6823998-0 (Version None)
Quarter: 2010Q3

REPORT INFORMATION
  Report Type: 
  Country: None (occurrence: None)
  Receive Date: 20100708
  Receipt Date: 20061227
  Transmission Date: 20110219
  Serious: No
  Sender: FDA-Public Use
  Company Number: US-PFIZER INC-2006113993

PATIENT
  Sex: Female
  Weight: 72.57 kg

DRUGS (3)
  1. CHANTIX [Suspect]
     Dates: start: 20060916
  2. PRAVACHOL [Concomitant]
  3. DYAZIDE [Concomitant]

REACTIONS (3)
  - FEELING ABNORMAL [None]
  - FEELING HOT [None]
  - NERVOUSNESS [None]
